FAERS Safety Report 19166066 (Version 1)
Quarter: 2021Q2

REPORT INFORMATION
  Report Type: Spontaneous
  Country: US (occurrence: US)
  Receive Date: 20210422
  Receipt Date: 20210422
  Transmission Date: 20210717
  Serious: Yes (Hospitalization, Disabling, Other)
  Sender: FDA-Public Use
  Company Number: US-APOTEX-2021AP009557

PATIENT
  Age: 65 Year
  Sex: Female

DRUGS (1)
  1. TEMOZOLOMIDE. [Suspect]
     Active Substance: TEMOZOLOMIDE
     Indication: MALIGNANT GLIOMA
     Dosage: UNK
     Route: 065

REACTIONS (2)
  - Hypermutation [Not Recovered/Not Resolved]
  - Gliosarcoma [Not Recovered/Not Resolved]
